FAERS Safety Report 15380557 (Version 4)
Quarter: 2019Q2

REPORT INFORMATION
  Report Type: Report from Study
  Country: US (occurrence: US)
  Receive Date: 20180913
  Receipt Date: 20190403
  Transmission Date: 20190711
  Serious: Yes (Hospitalization)
  Sender: FDA-Public Use
  Company Number: US-EISAI MEDICAL RESEARCH-EC-2018-045007

PATIENT
  Sex: Female

DRUGS (6)
  1. AFINITOR [Suspect]
     Active Substance: EVEROLIMUS
     Indication: RENAL CANCER
     Route: 048
     Dates: start: 201808
  2. LENVIMA [Suspect]
     Active Substance: LENVATINIB
     Dosage: DOSAGE INCREASED
     Route: 048
     Dates: start: 2019
  3. LENVIMA [Suspect]
     Active Substance: LENVATINIB
     Route: 048
     Dates: start: 20190116, end: 2019
  4. INSULIN [Interacting]
     Active Substance: INSULIN NOS
     Indication: PRODUCT USED FOR UNKNOWN INDICATION
     Dosage: DOSE AND FREQUENCY UNKNOWN
     Route: 058
  5. LENVIMA [Suspect]
     Active Substance: LENVATINIB
     Indication: RENAL CANCER
     Route: 048
     Dates: start: 201808, end: 201812
  6. LENVIMA [Suspect]
     Active Substance: LENVATINIB
     Route: 048
     Dates: start: 20181226, end: 201901

REACTIONS (40)
  - Pain [Not Recovered/Not Resolved]
  - Blister [Recovered/Resolved]
  - Haematuria [Not Recovered/Not Resolved]
  - Lethargy [Not Recovered/Not Resolved]
  - Fall [Unknown]
  - Eating disorder [Recovered/Resolved]
  - Hypothyroidism [Not Recovered/Not Resolved]
  - Onychoclasis [Unknown]
  - Muscle fatigue [Not Recovered/Not Resolved]
  - Kidney infection [Unknown]
  - Blood glucose fluctuation [Not Recovered/Not Resolved]
  - Arthralgia [Recovered/Resolved]
  - Weight decreased [Not Recovered/Not Resolved]
  - Abdominal discomfort [Not Recovered/Not Resolved]
  - Skin disorder [Not Recovered/Not Resolved]
  - Pruritus [Not Recovered/Not Resolved]
  - Blood glucose decreased [Unknown]
  - Drug interaction [Not Recovered/Not Resolved]
  - Fatigue [Not Recovered/Not Resolved]
  - Skin ulcer [Recovering/Resolving]
  - Burn oesophageal [Not Recovered/Not Resolved]
  - Body temperature abnormal [Recovering/Resolving]
  - Vomiting [Not Recovered/Not Resolved]
  - Coagulopathy [Not Recovered/Not Resolved]
  - Epistaxis [Not Recovered/Not Resolved]
  - Diarrhoea [Not Recovered/Not Resolved]
  - Malignant neoplasm progression [Not Recovered/Not Resolved]
  - Haemorrhage [Not Recovered/Not Resolved]
  - Dysphagia [Not Recovered/Not Resolved]
  - Dyspepsia [Not Recovered/Not Resolved]
  - Nausea [Recovered/Resolved]
  - Confusional state [Recovering/Resolving]
  - Contusion [Not Recovered/Not Resolved]
  - Alopecia [Unknown]
  - Intracranial mass [Not Recovered/Not Resolved]
  - Gastrointestinal tract irritation [Not Recovered/Not Resolved]
  - Bone pain [Recovering/Resolving]
  - Anaemia [Recovered/Resolved]
  - Furuncle [Recovered/Resolved]
  - Blood blister [Not Recovered/Not Resolved]

NARRATIVE: CASE EVENT DATE: 2018
